FAERS Safety Report 6946403-2 (Version None)
Quarter: 2010Q3

REPORT INFORMATION
  Report Type: 
  Country: None (occurrence: None)
  Receive Date: 20100827
  Receipt Date: 20100816
  Transmission Date: 20110219
  Serious: Yes (Hospitalization, Other)
  Sender: FDA-Public Use
  Company Number: US-ELI_LILLY_AND_COMPANY-US201008006635

PATIENT
  Sex: Female

DRUGS (13)
  1. FORTEO [Suspect]
     Indication: OSTEOPOROSIS
     Dosage: 20 UG, DAILY (1/D)
  2. TOVIAZ [Concomitant]
  3. PROVIGIL [Concomitant]
  4. NAMENDA [Concomitant]
  5. POTASSIUM [Concomitant]
  6. OPANA [Concomitant]
  7. PREDNISONE [Concomitant]
  8. OMEPRAZOLE [Concomitant]
  9. FLUOXETINE [Concomitant]
  10. FISH OIL [Concomitant]
  11. VITAMIN D [Concomitant]
  12. CALCIUM [Concomitant]
  13. COPAXONE [Concomitant]

REACTIONS (4)
  - ANKYLOSING SPONDYLITIS [None]
  - INTERVERTEBRAL DISC PROTRUSION [None]
  - PNEUMONIA FUNGAL [None]
  - SPINAL DISORDER [None]
